FAERS Safety Report 14214094 (Version 1)
Quarter: 2017Q4

REPORT INFORMATION
  Report Type: Spontaneous
  Country: US (occurrence: US)
  Receive Date: 20171122
  Receipt Date: 20171122
  Transmission Date: 20180321
  Serious: No
  Sender: FDA-Public Use
  Company Number: PHEH2017US036887

PATIENT
  Sex: Female
  Weight: 46.7 kg

DRUGS (1)
  1. BUPROPION HYDROCHLORIDE ACTAVIS [Suspect]
     Active Substance: BUPROPION HYDROCHLORIDE
     Indication: ANXIETY
     Dosage: 1 DF, BID
     Route: 065

REACTIONS (2)
  - Deja vu [Not Recovered/Not Resolved]
  - Dizziness [Not Recovered/Not Resolved]
